FAERS Safety Report 13894199 (Version 3)
Quarter: 2017Q4

REPORT INFORMATION
  Report Type: Report from Study
  Country: US (occurrence: US)
  Receive Date: 20170822
  Receipt Date: 20171012
  Transmission Date: 20180320
  Serious: Yes (Hospitalization, Disabling, Other)
  Sender: FDA-Public Use
  Company Number: US-MYLANLABS-2017M1050577

PATIENT

DRUGS (7)
  1. MERCAPTOPURINE. [Suspect]
     Active Substance: MERCAPTOPURINE
     Indication: ACUTE LYMPHOCYTIC LEUKAEMIA
     Dosage: 125 MG 2 X W, 100 MG 5 X W
     Route: 048
     Dates: start: 20170619, end: 20170726
  2. METHOTREXATE. [Suspect]
     Active Substance: METHOTREXATE
     Indication: ACUTE LYMPHOCYTIC LEUKAEMIA
     Dosage: 15 MG, DAYS 1, 8, 15 AND 22
     Route: 042
     Dates: start: 20170510
  3. INVESTIGATIONAL DRUG [Suspect]
     Active Substance: INVESTIGATIONAL PRODUCT
     Indication: ACUTE LYMPHOCYTIC LEUKAEMIA
     Dosage: 90 MG, BID
     Route: 048
     Dates: start: 20170619, end: 20170726
  4. CYTARABINE. [Suspect]
     Active Substance: CYTARABINE
     Indication: ACUTE LYMPHOCYTIC LEUKAEMIA
     Dosage: 137.25 MG, QD
     Route: 042
     Dates: start: 20170505, end: 20170726
  5. VINCRISTINE [Suspect]
     Active Substance: VINCRISTINE
     Indication: ACUTE LYMPHOCYTIC LEUKAEMIA
     Dosage: 2 MG, DAYS 15, 22, 43 AND 50
     Dates: start: 20170503
  6. PEGASPARGASE [Suspect]
     Active Substance: PEGASPARGASE
     Indication: ACUTE LYMPHOCYTIC LEUKAEMIA
     Dosage: 4475 IU, DAYS 15 AND 93
     Route: 042
     Dates: start: 20170506
  7. CYCLOPHOSPHAMIDE. [Suspect]
     Active Substance: CYCLOPHOSPHAMIDE
     Indication: ACUTE LYMPHOCYTIC LEUKAEMIA
     Dosage: 1790 MG, MONTHLY
     Route: 042
     Dates: start: 20170719

REACTIONS (4)
  - Sepsis [Recovered/Resolved]
  - Febrile neutropenia [Recovered/Resolved]
  - Cellulitis [Recovering/Resolving]
  - Bacterial infection [Recovering/Resolving]

NARRATIVE: CASE EVENT DATE: 20170724
